FAERS Safety Report 22643312 (Version 1)
Quarter: 2023Q2

REPORT INFORMATION
  Report Type: Spontaneous
  Country: US (occurrence: None)
  Receive Date: 20230627
  Receipt Date: 20230627
  Transmission Date: 20230722
  Serious: Yes (Hospitalization)
  Sender: FDA-Public Use
  Company Number: US-ROCHE-3372835

PATIENT
  Sex: Female

DRUGS (5)
  1. HERCEPTIN [Suspect]
     Active Substance: TRASTUZUMAB
     Indication: Breast cancer
     Dosage: TAKEN ALONG WITH TAXOL ;ONGOING: NO
     Route: 041
     Dates: start: 20220913, end: 20221122
  2. HERCEPTIN [Suspect]
     Active Substance: TRASTUZUMAB
     Dosage: HERCEPTIN ONLY; HIGHER DOSAGE ;ONGOING: YES
     Route: 041
     Dates: start: 20221122
  3. TAXOL [Suspect]
     Active Substance: PACLITAXEL
     Indication: Breast cancer
     Dosage: 11 TREATMENTS COMPLETED ;ONGOING: NO
     Route: 041
     Dates: start: 20220913, end: 20221122
  4. LIPITOR [Suspect]
     Active Substance: ATORVASTATIN CALCIUM
     Indication: Blood cholesterol
     Dosage: UNKNOWN
     Route: 065
  5. TRAMADOL [Concomitant]
     Active Substance: TRAMADOL
     Indication: Pain
     Dosage: UNKNOWN
     Route: 065

REACTIONS (8)
  - Body temperature increased [Unknown]
  - Myalgia [Not Recovered/Not Resolved]
  - Neuropathy peripheral [Recovering/Resolving]
  - Swelling [Not Recovered/Not Resolved]
  - Plantar fasciitis [Recovering/Resolving]
  - Oedema peripheral [Unknown]
  - Asthenia [Unknown]
  - Blood cholesterol increased [Unknown]

NARRATIVE: CASE EVENT DATE: 20221001
